FAERS Safety Report 7417909-7 (Version None)
Quarter: 2011Q2

REPORT INFORMATION
  Report Type: 
  Country: None (occurrence: None)
  Receive Date: 20110415
  Receipt Date: 20110406
  Transmission Date: 20111010
  Serious: Yes (Other)
  Sender: FDA-Public Use
  Company Number: BE-ELI_LILLY_AND_COMPANY-BE201104000238

PATIENT
  Age: 55 Year
  Sex: Female

DRUGS (2)
  1. ALIMTA [Suspect]
     Indication: NON-SMALL CELL LUNG CANCER
     Dosage: UNK, UNKNOWN
     Route: 065
     Dates: start: 20110301
  2. CISPLATIN [Concomitant]
     Indication: NON-SMALL CELL LUNG CANCER

REACTIONS (3)
  - BRONCHOSPASM [None]
  - ERYTHEMA [None]
  - URTICARIA [None]
